FAERS Safety Report 20553513 (Version 1)
Quarter: 2022Q1

REPORT INFORMATION
  Report Type: Spontaneous
  Country: JP (occurrence: JP)
  Receive Date: 20220304
  Receipt Date: 20220304
  Transmission Date: 20220424
  Serious: Yes (Death, Hospitalization)
  Sender: FDA-Public Use
  Company Number: JP-JT-EVA202200182KERYXP

PATIENT
  Age: 66 Year
  Sex: Male

DRUGS (2)
  1. FERRIC CITRATE ANHYDROUS [Suspect]
     Active Substance: FERRIC CITRATE ANHYDROUS
     Indication: Product used for unknown indication
     Dosage: 500 MILLIGRAM, QD
     Route: 048
  2. UNSPECIFIED INGREDIENT [Suspect]
     Active Substance: UNSPECIFIED INGREDIENT
     Indication: Tolosa-Hunt syndrome
     Dosage: UNK
     Route: 065

REACTIONS (6)
  - Intra-abdominal haematoma [Fatal]
  - Gastrointestinal mucormycosis [Unknown]
  - Peritonitis bacterial [Unknown]
  - Large intestine perforation [Unknown]
  - Vascular rupture [Unknown]
  - Haemorrhagic infarction [Unknown]
